FAERS Safety Report 6529931-3 (Version None)
Quarter: 2010Q1

REPORT INFORMATION
  Report Type: 
  Country: None (occurrence: None)
  Receive Date: 20100107
  Receipt Date: 20100104
  Transmission Date: 20100710
  Serious: Yes (Death)
  Sender: FDA-Public Use
  Company Number: D0063145A

PATIENT
  Sex: Male

DRUGS (6)
  1. LEUKERAN [Suspect]
     Route: 048
     Dates: start: 20061101
  2. URBASON [Concomitant]
     Dosage: 40MG PER DAY
     Route: 065
  3. HYDROCHLOROTHIAZIDE + RAMIPRIL [Concomitant]
     Route: 065
  4. CARVEDILOL [Concomitant]
     Dosage: 12.5MG TWICE PER DAY
     Route: 065
  5. ASPIRIN [Concomitant]
     Dosage: 100MG IN THE MORNING
     Route: 065
  6. PARACETAMOL [Concomitant]
     Route: 048

REACTIONS (13)
  - ASCITES [None]
  - ESCHERICHIA SEPSIS [None]
  - GAMMA-GLUTAMYLTRANSFERASE INCREASED [None]
  - HEPATIC NECROSIS [None]
  - HEPATOTOXICITY [None]
  - MYELODYSPLASTIC SYNDROME [None]
  - OEDEMA PERIPHERAL [None]
  - PANCYTOPENIA [None]
  - PERICARDIAL EFFUSION [None]
  - PNEUMONIA [None]
  - PROTHROMBIN TIME PROLONGED [None]
  - RENAL FAILURE ACUTE [None]
  - YELLOW SKIN [None]
